FAERS Safety Report 21913439 (Version 1)
Quarter: 2023Q1

REPORT INFORMATION
  Report Type: Spontaneous
  Country: US (occurrence: US)
  Receive Date: 20230125
  Receipt Date: 20230125
  Transmission Date: 20230418
  Serious: No
  Sender: FDA-Public Use
  Company Number: US-ALLERGAN-2212985US

PATIENT
  Sex: Male

DRUGS (3)
  1. BOTOX [Suspect]
     Active Substance: ONABOTULINUMTOXINA
     Indication: Vocal cord disorder
     Dosage: UNK UNK, SINGLE
  2. HUMIRA [Concomitant]
     Active Substance: ADALIMUMAB
     Dosage: 15 MILLIGRAM
     Route: 048
  3. RINVOQ [Concomitant]
     Active Substance: UPADACITINIB
     Dosage: 15 MG

REACTIONS (2)
  - Off label use [Unknown]
  - Therapeutic response decreased [Unknown]
